FAERS Safety Report 14695480 (Version 1)
Quarter: 2018Q1

REPORT INFORMATION
  Report Type: Spontaneous
  Country: US (occurrence: US)
  Receive Date: 20180327
  Receipt Date: 20180327
  Transmission Date: 20180509
  Serious: Yes (Life-Threatening, Hospitalization)
  Sender: FDA-Public Use
  Company Number: None

PATIENT
  Age: 56 Year
  Sex: Male
  Weight: 131 kg

DRUGS (1)
  1. LISINOPRIL. [Suspect]
     Active Substance: LISINOPRIL
     Indication: HYPERTENSION
     Route: 048
     Dates: start: 20161019, end: 20170929

REACTIONS (10)
  - Laryngeal disorder [None]
  - Drug dose omission [None]
  - Angioedema [None]
  - Swelling face [None]
  - Extra dose administered [None]
  - Cardio-respiratory arrest [None]
  - Hyperhidrosis [None]
  - Dyspnoea [None]
  - Tachycardia [None]
  - Pulmonary embolism [None]

NARRATIVE: CASE EVENT DATE: 20170929
